FAERS Safety Report 4346194-8 (Version None)
Quarter: 2004Q1

REPORT INFORMATION
  Report Type: 
  Country: None (occurrence: None)
  Receive Date: 20040325
  Receipt Date: 20040109
  Transmission Date: 20041129
  Serious: No
  Sender: FDA-Public Use
  Company Number: USA040156231

PATIENT
  Age: 67 Year
  Sex: Female

DRUGS (1)
  1. FORTEO [Suspect]
     Dates: start: 20031101, end: 20040101

REACTIONS (5)
  - BACK DISORDER [None]
  - DIFFICULTY IN WALKING [None]
  - MUSCLE CRAMP [None]
  - PAIN IN EXTREMITY [None]
  - WALKING AID USER [None]
